FAERS Safety Report 23844296 (Version 1)
Quarter: 2024Q2

REPORT INFORMATION
  Report Type: Spontaneous
  Country: US (occurrence: US)
  Receive Date: 20240510
  Receipt Date: 20240510
  Transmission Date: 20240715
  Serious: No
  Sender: FDA-Public Use
  Company Number: US-INCYTE CORPORATION-2024IN004482

PATIENT

DRUGS (1)
  1. OPZELURA [Suspect]
     Active Substance: RUXOLITINIB PHOSPHATE
     Indication: Vitiligo
     Dosage: UNK, BID (EVERY DAY AND NIGHT)
     Route: 061

REACTIONS (4)
  - Product availability issue [Unknown]
  - Fatigue [Unknown]
  - Vitiligo [Unknown]
  - Therapeutic product effect decreased [Unknown]
